FAERS Safety Report 8623309 (Version 2)
Quarter: 2013Q2

REPORT INFORMATION
  Report Type: Report from Study
  Country: MX (occurrence: MX)
  Receive Date: 20120620
  Receipt Date: 20130426
  Transmission Date: 20140414
  Serious: Yes (Death)
  Sender: FDA-Public Use
  Company Number: PHHY2012MX052136

PATIENT
  Sex: Female

DRUGS (3)
  1. ACLASTA [Suspect]
     Indication: OSTEOPOROSIS
     Dosage: 5 MG/100 ML, ONCE A YEAR
     Route: 042
     Dates: start: 20080229
  2. ACLASTA [Suspect]
     Dosage: 5 MG/100 ML, ONCE A YEAR
     Route: 042
  3. ACLASTA [Suspect]
     Dosage: 5 MG/100 ML, ONCE A YEAR
     Route: 042

REACTIONS (1)
  - Infarction [Fatal]
